FAERS Safety Report 4277236-6 (Version None)
Quarter: 2004Q1

REPORT INFORMATION
  Report Type: 
  Country: None (occurrence: None)
  Receive Date: 20040120
  Receipt Date: 20031229
  Transmission Date: 20041129
  Serious: Yes (Hospitalization, Disabling, Other)
  Sender: FDA-Public Use
  Company Number: NSADSS2003017342

PATIENT
  Age: 84 Year
  Sex: Male

DRUGS (18)
  1. REMICADE [Suspect]
     Indication: RHEUMATOID ARTHRITIS
     Dosage: 1 IN 1 AS NECESSARY, INTRAVENOUS DRIP
     Route: 041
     Dates: start: 20001011, end: 20001011
  2. OXYGEN (OXYGEN) [Concomitant]
  3. PROSCAR [Concomitant]
  4. FOLATE (FOLATE SODIUM) [Concomitant]
  5. ASPRIN (ACETYLSALICYLIC ACID) [Concomitant]
  6. METHOTREXATE [Concomitant]
  7. FLOVENT [Concomitant]
  8. ATROVENT [Concomitant]
  9. PROVENTIL [Concomitant]
  10. FLONASE [Concomitant]
  11. COUMADIN [Concomitant]
  12. ATENOLOL [Concomitant]
  13. OXYCONTIN [Concomitant]
  14. LASIX [Concomitant]
  15. DILANTIN [Concomitant]
  16. CELEBREX [Concomitant]
  17. LORTAB [Concomitant]
  18. FOSAMAX [Concomitant]

REACTIONS (44)
  - ANTICONVULSANT DRUG LEVEL BELOW THERAPEUTIC [None]
  - AORTIC CALCIFICATION [None]
  - ARTHRALGIA [None]
  - BACK DISORDER [None]
  - BACTERIA STOOL IDENTIFIED [None]
  - BACTERIAL INFECTION [None]
  - BLOOD ALBUMIN DECREASED [None]
  - BREAST HYPERPLASIA [None]
  - BREAST MASS [None]
  - BRONCHOPNEUMONIA [None]
  - CARDIAC FAILURE CONGESTIVE [None]
  - CARDIOMEGALY [None]
  - CHEST X-RAY ABNORMAL [None]
  - CONDITION AGGRAVATED [None]
  - CONTUSION [None]
  - DEEP VEIN THROMBOSIS [None]
  - DEHYDRATION [None]
  - DIZZINESS [None]
  - DRUG TOXICITY [None]
  - DRUG WITHDRAWAL SYNDROME [None]
  - DYSKINESIA [None]
  - DYSPNOEA [None]
  - EXOSTOSIS [None]
  - FALL [None]
  - GYNAECOMASTIA [None]
  - HAEMATOCRIT DECREASED [None]
  - HAEMOGLOBIN DECREASED [None]
  - HALLUCINATION [None]
  - HISTOPLASMOSIS [None]
  - HYPERHIDROSIS [None]
  - HYPERTHERMIA [None]
  - HYPOGLYCAEMIA [None]
  - HYPOVOLAEMIA [None]
  - IMMUNOSUPPRESSION [None]
  - INTERNATIONAL NORMALISED RATIO DECREASED [None]
  - LUNG DISORDER [None]
  - MUSCLE SPASMS [None]
  - NECK PAIN [None]
  - PLEURAL EFFUSION [None]
  - PNEUMONIA [None]
  - PNEUMOTHORAX [None]
  - PULMONARY TUBERCULOSIS [None]
  - TREMOR [None]
  - WHITE BLOOD CELL COUNT DECREASED [None]
